FAERS Safety Report 15206493 (Version 1)
Quarter: 2018Q3

REPORT INFORMATION
  Report Type: Spontaneous
  Country: US (occurrence: US)
  Receive Date: 20180727
  Receipt Date: 20180727
  Transmission Date: 20181010
  Serious: No
  Sender: FDA-Public Use
  Company Number: US-ASTRAZENECA-2018SE84406

PATIENT
  Age: 25124 Day
  Sex: Female
  Weight: 78.5 kg

DRUGS (4)
  1. BYDUREON BCISE [Suspect]
     Active Substance: EXENATIDE
     Indication: DIABETES MELLITUS
     Route: 058
  2. METFORMIN [Suspect]
     Active Substance: METFORMIN HYDROCHLORIDE
     Dosage: 500 MG, TWO TIMES A DAY, NON AZ
     Route: 048
  3. METFORMIN [Suspect]
     Active Substance: METFORMIN HYDROCHLORIDE
     Dosage: 500 MG, ONCE A DAY NON AZ
     Route: 048
  4. GABAPENTIN. [Concomitant]
     Active Substance: GABAPENTIN
     Indication: NEUROPATHY PERIPHERAL
     Route: 048

REACTIONS (7)
  - Incorrect dose administered [Unknown]
  - Pain [Unknown]
  - Nausea [Unknown]
  - Malaise [Recovered/Resolved]
  - Asthenia [Unknown]
  - Needle issue [Unknown]
  - Dizziness [Unknown]

NARRATIVE: CASE EVENT DATE: 20180626
